FAERS Safety Report 7781661-6 (Version None)
Quarter: 2011Q3

REPORT INFORMATION
  Report Type: 
  Country: None (occurrence: None)
  Receive Date: 20110927
  Receipt Date: 20110518
  Transmission Date: 20111222
  Serious: No
  Sender: FDA-Public Use
  Company Number: US-BAYER-2011-044371

PATIENT
  Age: 73 Year
  Sex: Female
  Weight: 107 kg

DRUGS (5)
  1. ALEVE (CAPLET) [Suspect]
     Indication: ARTHRITIS
     Dosage: 220 MG, QD
     Route: 048
     Dates: start: 20110401
  2. UNKNOWN [Concomitant]
  3. CRESTOR [Concomitant]
  4. MULTI-VITAMINS [Concomitant]
  5. UNKNOWN [Concomitant]

REACTIONS (1)
  - NECK PAIN [None]
